FAERS Safety Report 22629811 (Version 2)
Quarter: 2023Q4

REPORT INFORMATION
  Report Type: Spontaneous
  Country: US (occurrence: US)
  Receive Date: 20230622
  Receipt Date: 20231030
  Transmission Date: 20240110
  Serious: Yes (Hospitalization, Other)
  Sender: FDA-Public Use
  Company Number: US-SUN PHARMACEUTICAL INDUSTRIES LTD-2023R1-395847

PATIENT
  Age: 53 Year
  Sex: Female

DRUGS (1)
  1. OXYCODONE [Suspect]
     Active Substance: OXYCODONE
     Indication: Product used for unknown indication
     Dosage: 5 MILLIGRAM, DAILY
     Route: 065

REACTIONS (5)
  - Withdrawal syndrome [Unknown]
  - Pneumonia aspiration [Unknown]
  - Chills [Unknown]
  - Hypobarism [Unknown]
  - Nausea [Unknown]
